FAERS Safety Report 9540731 (Version 1)
Quarter: 2013Q3

REPORT INFORMATION
  Report Type: Spontaneous
  Country: US (occurrence: US)
  Receive Date: 20130920
  Receipt Date: 20130920
  Transmission Date: 20140515
  Serious: No
  Sender: FDA-Public Use
  Company Number: US-PFIZER INC-2013270071

PATIENT
  Age: 53 Year
  Sex: Female
  Weight: 63.49 kg

DRUGS (4)
  1. LYRICA [Suspect]
     Indication: FIBROMYALGIA
     Dosage: 300 MG, 1X/DAY
     Dates: end: 2013
  2. LYRICA [Suspect]
     Indication: PAIN
  3. MOBIC [Suspect]
     Indication: OSTEOARTHRITIS
     Dosage: UNK
  4. LISINOPRIL [Concomitant]
     Indication: BLOOD PRESSURE
     Dosage: 10 MG, 1X/DAY

REACTIONS (8)
  - Drug withdrawal syndrome [Recovering/Resolving]
  - Anxiety [Recovering/Resolving]
  - Hyperhidrosis [Recovering/Resolving]
  - Hot flush [Recovering/Resolving]
  - Headache [Recovered/Resolved]
  - Pain [Recovering/Resolving]
  - Malaise [Unknown]
  - Swelling [Unknown]
